FAERS Safety Report 24236500 (Version 4)
Quarter: 2025Q1

REPORT INFORMATION
  Report Type: Spontaneous
  Country: US (occurrence: US)
  Receive Date: 20240822
  Receipt Date: 20250120
  Transmission Date: 20250409
  Serious: No
  Sender: ROCHE
  Company Number: US-ROCHE-10000061695

PATIENT
  Sex: Female

DRUGS (4)
  1. VABYSMO [Suspect]
     Active Substance: FARICIMAB-SVOA
     Indication: Diabetic retinal oedema
     Route: 065
  2. LUCENTIS [Suspect]
     Active Substance: RANIBIZUMAB
     Indication: Diabetic retinal oedema
     Route: 065
  3. AVASTIN [Suspect]
     Active Substance: BEVACIZUMAB
     Indication: Diabetic retinal oedema
     Route: 065
  4. EYLEA [Concomitant]
     Active Substance: AFLIBERCEPT

REACTIONS (2)
  - Off label use [Unknown]
  - Vitreous floaters [Unknown]
